FAERS Safety Report 7027133-8 (Version None)
Quarter: 2010Q4

REPORT INFORMATION
  Report Type: 
  Country: None (occurrence: None)
  Receive Date: 20101004
  Receipt Date: 20100923
  Transmission Date: 20110411
  Serious: Yes (Hospitalization)
  Sender: FDA-Public Use
  Company Number: US-US-EMD SERONO, INC.-7016373

PATIENT
  Sex: Female
  Weight: 82 kg

DRUGS (6)
  1. REBIF [Suspect]
     Indication: MULTIPLE SCLEROSIS
     Route: 058
     Dates: start: 20040906
  2. BACLOFEN [Concomitant]
     Indication: BACK DISORDER
     Route: 048
  3. NATURE MADE VITAMIN D3 [Concomitant]
     Indication: SUPPLEMENTATION THERAPY
     Route: 048
  4. MULTIVITAMIN WITH IRON [Concomitant]
     Indication: SUPPLEMENTATION THERAPY
     Route: 048
  5. HEALTHBEST OMEGA 3 FISH OIL [Concomitant]
     Route: 048
  6. VITAMIN B-12 [Concomitant]

REACTIONS (2)
  - MULTIPLE SCLEROSIS RELAPSE [None]
  - URINARY TRACT INFECTION [None]
